FAERS Safety Report 10418965 (Version 1)
Quarter: 2014Q2

REPORT INFORMATION
  Report Type: Spontaneous
  Country: US (occurrence: None)
  Receive Date: 20140625
  Receipt Date: 20140625
  Transmission Date: 20141212
  Serious: Yes (Life-Threatening)
  Sender: FDA-Public Use
  Company Number: A-NJ2014-97186

PATIENT
  Age: 51 Year
  Sex: Female

DRUGS (4)
  1. OPSUMIT (MACITENTAN) [Suspect]
     Indication: COR PULMONALE CHRONIC
     Route: 048
  2. TYVASO (TREPROSTINIL SODIUM) [Concomitant]
  3. COUMADIN (WARFARIN SODIUM) [Concomitant]
  4. ADCIRCA (TADALAFIL) [Concomitant]

REACTIONS (1)
  - Cardiac failure [None]
